FAERS Safety Report 5386097-3 (Version None)
Quarter: 2007Q3

REPORT INFORMATION
  Report Type: 
  Country: None (occurrence: None)
  Receive Date: 20070710
  Receipt Date: 20070629
  Transmission Date: 20080115
  Serious: Yes (Hospitalization)
  Sender: FDA-Public Use
  Company Number: B0477570A

PATIENT
  Age: 13 Year
  Sex: Male

DRUGS (2)
  1. PAXIL [Suspect]
     Indication: PANIC DISORDER
     Dosage: ORAL
     Route: 048
  2. BROMAZEPAM [Concomitant]

REACTIONS (7)
  - ABNORMAL BEHAVIOUR [None]
  - FEAR [None]
  - FEELING ABNORMAL [None]
  - NAUSEA [None]
  - TEMPORAL LOBE EPILEPSY [None]
  - TREMOR [None]
  - VOMITING [None]
